FAERS Safety Report 6092252-X (Version None)
Quarter: 2009Q1

REPORT INFORMATION
  Report Type: 
  Country: None (occurrence: None)
  Receive Date: 20090225
  Receipt Date: 20090223
  Transmission Date: 20090719
  Serious: Yes (Other)
  Sender: FDA-Public Use
  Company Number: A0769802A

PATIENT
  Age: 43 Year
  Sex: Female

DRUGS (14)
  1. ADVAIR HFA [Suspect]
     Indication: CHRONIC OBSTRUCTIVE PULMONARY DISEASE
     Route: 055
  2. ALBUTEROL [Concomitant]
  3. WARFARIN [Concomitant]
  4. UNKNOWN [Concomitant]
  5. DUONEB [Concomitant]
  6. ZOLOFT [Concomitant]
  7. VALIUM [Concomitant]
  8. PERCOCET [Concomitant]
  9. NEURONTIN [Concomitant]
  10. POTASSIUM CHLORIDE [Concomitant]
  11. OXYCONTIN [Concomitant]
  12. COMPAZINE [Concomitant]
  13. CARDIZEM [Concomitant]
  14. GEMFIBROZIL [Concomitant]

REACTIONS (3)
  - BLINDNESS [None]
  - EXOPHTHALMOS [None]
  - EYE PAIN [None]
